FAERS Safety Report 16497938 (Version 1)
Quarter: 2019Q2

REPORT INFORMATION
  Report Type: Spontaneous
  Country: US (occurrence: US)
  Receive Date: 20190628
  Receipt Date: 20190628
  Transmission Date: 20190711
  Serious: No
  Sender: FDA-Public Use
  Company Number: US-ROCHE-2218740

PATIENT
  Sex: Female

DRUGS (7)
  1. HUMIRA [Concomitant]
     Active Substance: ADALIMUMAB
     Route: 065
     Dates: start: 2017, end: 2018
  2. ENBREL [Concomitant]
     Active Substance: ETANERCEPT
  3. ACTEMRA [Suspect]
     Active Substance: TOCILIZUMAB
     Indication: PRODUCT USED FOR UNKNOWN INDICATION
     Route: 065
  4. HYDROQUINONE. [Concomitant]
     Active Substance: HYDROQUINONE
  5. METHOTREXATE. [Concomitant]
     Active Substance: METHOTREXATE
  6. SIMPONI [Concomitant]
     Active Substance: GOLIMUMAB
     Route: 042
  7. ORENCIA [Concomitant]
     Active Substance: ABATACEPT

REACTIONS (1)
  - Drug ineffective [Unknown]
